FAERS Safety Report 22989304 (Version 2)
Quarter: 2023Q4

REPORT INFORMATION
  Report Type: Spontaneous
  Country: PT (occurrence: PT)
  Receive Date: 20230927
  Receipt Date: 20231004
  Transmission Date: 20240110
  Serious: Yes (Hospitalization, Other)
  Sender: FDA-Public Use
  Company Number: PT-MLMSERVICE-20230911-4536217-1

PATIENT
  Age: 24 Year
  Sex: Male

DRUGS (1)
  1. CLOZAPINE [Suspect]
     Active Substance: CLOZAPINE
     Indication: Schizophrenia
     Dosage: UNK
     Route: 065

REACTIONS (4)
  - Electrocardiogram ST segment elevation [Recovered/Resolved]
  - Left ventricular dysfunction [Recovered/Resolved]
  - Myocardial oedema [Recovered/Resolved]
  - Myocarditis [Recovered/Resolved]
